FAERS Safety Report 14510271 (Version 1)
Quarter: 2018Q1

REPORT INFORMATION
  Report Type: Spontaneous
  Country: US (occurrence: US)
  Receive Date: 20180209
  Receipt Date: 20180209
  Transmission Date: 20180509
  Serious: Yes (Other)
  Sender: FDA-Public Use
  Company Number: US-JNJFOC-20180206957

PATIENT
  Age: 69 Year
  Sex: Male
  Weight: 81.65 kg

DRUGS (4)
  1. IBUPROFEN. [Concomitant]
     Active Substance: IBUPROFEN
     Route: 065
  2. RISPERDAL CONSTA [Suspect]
     Active Substance: RISPERIDONE
     Indication: BIPOLAR DISORDER
     Route: 030
     Dates: start: 201609, end: 201609
  3. RISPERDAL CONSTA [Suspect]
     Active Substance: RISPERIDONE
     Indication: BIPOLAR DISORDER
     Route: 030
     Dates: start: 201609
  4. RISPERDAL CONSTA [Suspect]
     Active Substance: RISPERIDONE
     Indication: BIPOLAR DISORDER
     Route: 030
     Dates: start: 201703

REACTIONS (11)
  - Pharyngeal oedema [Unknown]
  - Discomfort [Unknown]
  - Neck pain [Unknown]
  - Dizziness [Unknown]
  - Chest discomfort [Unknown]
  - Glossitis [Unknown]
  - Laryngeal oedema [Unknown]
  - Weight increased [Unknown]
  - Inflammation [Unknown]
  - Neuralgia [Unknown]
  - Anxiety [Unknown]

NARRATIVE: CASE EVENT DATE: 201609
